FAERS Safety Report 11663098 (Version 1)
Quarter: 2015Q4

REPORT INFORMATION
  Report Type: Spontaneous
  Country: US (occurrence: US)
  Receive Date: 20151027
  Receipt Date: 20151027
  Transmission Date: 20160304
  Serious: No
  Sender: FDA-Public Use
  Company Number: US-MEDA-2010110016

PATIENT
  Sex: Female

DRUGS (1)
  1. ONSOLIS [Suspect]
     Active Substance: FENTANYL CITRATE
     Route: 002
     Dates: start: 2010

REACTIONS (1)
  - Malaise [Recovering/Resolving]

NARRATIVE: CASE EVENT DATE: 2010
